FAERS Safety Report 4705846-8 (Version None)
Quarter: 2005Q2

REPORT INFORMATION
  Report Type: 
  Country: None (occurrence: None)
  Receive Date: 20050629
  Receipt Date: 20050315
  Transmission Date: 20051028
  Serious: Yes (Hospitalization)
  Sender: FDA-Public Use
  Company Number: 05P-163-0294030-00

PATIENT
  Age: 63 Year
  Sex: Female
  Weight: 74.8435 kg

DRUGS (8)
  1. HUMIRA [Suspect]
     Indication: RHEUMATOID ARTHRITIS
     Dosage: 40 MG, 1 IN 2 WK, SUBCUTANEOUS
     Route: 058
     Dates: start: 20040101, end: 20040801
  2. HUMIRA [Suspect]
     Indication: RHEUMATOID ARTHRITIS
     Dosage: 40 MG, 1 IN 2 WK, SUBCUTANEOUS
     Route: 058
     Dates: start: 20041101, end: 20041101
  3. METHYLPREDNISOLONE [Concomitant]
  4. AMLODIPINE BESILATE [Concomitant]
  5. MORPHINE [Concomitant]
  6. CYANOCOBALAMIN [Concomitant]
  7. ASCORBIC ACID [Concomitant]
  8. TOCOPHEROL CONCENTRATE CAP [Concomitant]

REACTIONS (4)
  - INFLUENZA [None]
  - KIDNEY INFECTION [None]
  - NASOPHARYNGITIS [None]
  - SEPSIS [None]
